FAERS Safety Report 4989379-X (Version None)
Quarter: 2006Q2

REPORT INFORMATION
  Report Type: 
  Country: None (occurrence: None)
  Receive Date: 20060425
  Receipt Date: 20060413
  Transmission Date: 20061013
  Serious: Yes (Hospitalization, Other)
  Sender: FDA-Public Use
  Company Number: 2006050904

PATIENT
  Age: 49 Year
  Sex: Male
  Weight: 90.7194 kg

DRUGS (2)
  1. NEURONTIN [Suspect]
     Indication: BACK PAIN
     Dates: start: 20030601, end: 20031216
  2. LIPITOR [Concomitant]

REACTIONS (4)
  - APATHY [None]
  - DEPRESSION [None]
  - SUICIDE ATTEMPT [None]
  - UNEVALUABLE EVENT [None]
